FAERS Safety Report 7816267-3 (Version None)
Quarter: 2011Q4

REPORT INFORMATION
  Report Type: 
  Country: None (occurrence: None)
  Receive Date: 20111016
  Receipt Date: 20111010
  Transmission Date: 20120403
  Serious: Yes (Hospitalization, Other)
  Sender: FDA-Public Use
  Company Number: GB-MYLANLABS-2011S1020653

PATIENT
  Age: 1 Year
  Sex: Male
  Weight: 12.5 kg

DRUGS (6)
  1. FLUCONAZOLE [Suspect]
  2. METHYLPREDNISOLONE [Suspect]
     Indication: RENAL TRANSPLANT
  3. FLUCONAZOLE [Suspect]
     Route: 042
  4. TACROLIMUS [Suspect]
     Indication: RENAL TRANSPLANT
  5. FLUCONAZOLE [Suspect]
     Indication: CANDIDIASIS
     Route: 048
  6. AZATHIOPRINE [Suspect]
     Indication: RENAL TRANSPLANT

REACTIONS (8)
  - DRUG LEVEL INCREASED [None]
  - LOSS OF CONSCIOUSNESS [None]
  - COMPLICATIONS OF TRANSPLANTED KIDNEY [None]
  - URETERIC OBSTRUCTION [None]
  - PERITONEAL CANDIDIASIS [None]
  - SEPTIC SHOCK [None]
  - STRABISMUS [None]
  - DRUG INTERACTION [None]
